FAERS Safety Report 7078660-9 (Version None)
Quarter: 2010Q4

REPORT INFORMATION
  Report Type: 
  Country: None (occurrence: None)
  Receive Date: 20101101
  Receipt Date: 20101101
  Transmission Date: 20110411
  Serious: Yes (Disabling)
  Sender: FDA-Public Use
  Company Number: None

PATIENT
  Age: 65 Year
  Sex: Female
  Weight: 86.1834 kg

DRUGS (2)
  1. ACTOS [Suspect]
     Indication: DIABETES MELLITUS
     Dosage: 15 MG 1 A DAY 2008 45 MG 1 A DAY TO 6/10/10
     Dates: end: 20100610
  2. ACTOS [Suspect]
     Indication: DIABETES MELLITUS
     Dosage: 15 MG 1 A DAY 2008 45 MG 1 A DAY TO 6/10/10
     Dates: start: 20080101

REACTIONS (3)
  - ANKLE FRACTURE [None]
  - FALL [None]
  - FOOT FRACTURE [None]
